FAERS Safety Report 4491500-7 (Version None)
Quarter: 2004Q4

REPORT INFORMATION
  Report Type: 
  Country: None (occurrence: None)
  Receive Date: 20041101
  Receipt Date: 20041015
  Transmission Date: 20050328
  Serious: Yes (Death)
  Sender: FDA-Public Use
  Company Number: B0348734A

PATIENT
  Age: 83 Year
  Sex: Female

DRUGS (4)
  1. PAXIL [Suspect]
     Dosage: 20 MG/PER DAY/ORAL
  2. MADOPAR [Concomitant]
  3. PERGOLIDE MESYLATE [Concomitant]
  4. CARBASPIRIN CALCIUM [Concomitant]

REACTIONS (1)
  - HYPONATRAEMIA [None]
